FAERS Safety Report 5205393-3 (Version None)
Quarter: 2007Q1

REPORT INFORMATION
  Report Type: 
  Country: None (occurrence: None)
  Receive Date: 20070108
  Receipt Date: 20061227
  Transmission Date: 20070707
  Serious: Yes (Hospitalization)
  Sender: FDA-Public Use
  Company Number: 2006BI002418

PATIENT
  Sex: Male

DRUGS (1)
  1. AVONEX [Suspect]
     Indication: MULTIPLE SCLEROSIS
     Dosage: 30 UG;QW;IM
     Route: 030
     Dates: start: 20050708

REACTIONS (14)
  - ABSCESS [None]
  - BALANCE DISORDER [None]
  - CONDITION AGGRAVATED [None]
  - DIABETES MELLITUS [None]
  - FALL [None]
  - IATROGENIC INJURY [None]
  - INJECTION SITE CELLULITIS [None]
  - JOINT DISLOCATION [None]
  - KNEE OPERATION [None]
  - MULTIPLE SCLEROSIS [None]
  - ROTATOR CUFF SYNDROME [None]
  - SPINAL CORD DISORDER [None]
  - UPPER LIMB FRACTURE [None]
  - URINARY TRACT INFECTION [None]
